FAERS Safety Report 12105784 (Version 2)
Quarter: 2016Q1

REPORT INFORMATION
  Report Type: Spontaneous
  Country: US (occurrence: US)
  Receive Date: 20160223
  Receipt Date: 20160325
  Transmission Date: 20160526
  Serious: Yes (Other)
  Sender: FDA-Public Use
  Company Number: US-PFIZER INC-2016093004

PATIENT
  Age: 85 Year
  Sex: Female

DRUGS (3)
  1. LETROZOLE. [Suspect]
     Active Substance: LETROZOLE
     Dosage: UNK
  2. IBRANCE [Suspect]
     Active Substance: PALBOCICLIB
     Dosage: UNK MG, UNK
     Dates: start: 20160127
  3. IBRANCE [Suspect]
     Active Substance: PALBOCICLIB
     Dosage: 75 MG, UNK
     Dates: start: 20160212

REACTIONS (5)
  - Mastitis [Unknown]
  - Sleep disorder [Unknown]
  - Breast ulceration [Unknown]
  - Diarrhoea [Unknown]
  - White blood cell count decreased [Unknown]
